FAERS Safety Report 7105842-X (Version None)
Quarter: 2010Q4

REPORT INFORMATION
  Report Type: 
  Country: None (occurrence: None)
  Receive Date: 20101116
  Receipt Date: 20101108
  Transmission Date: 20110411
  Serious: Yes (Death, Hospitalization)
  Sender: FDA-Public Use
  Company Number: A0716466A

PATIENT
  Age: 74 Year
  Sex: Male
  Weight: 95.5 kg

DRUGS (8)
  1. AVANDIA [Suspect]
     Indication: TYPE 2 DIABETES MELLITUS
     Dosage: 4MG PER DAY
     Route: 048
     Dates: start: 20040601, end: 20070601
  2. INSULIN [Concomitant]
     Dates: end: 20070601
  3. ASPIRIN [Concomitant]
  4. MULTI-VITAMIN [Concomitant]
  5. METAMUCIL-2 [Concomitant]
  6. LIPITOR [Concomitant]
  7. LASIX [Concomitant]
  8. ATENOLOL [Concomitant]

REACTIONS (14)
  - ANKLE FRACTURE [None]
  - BACK PAIN [None]
  - CORONARY ARTERY DISEASE [None]
  - FALL [None]
  - GASTRIC DISORDER [None]
  - GASTRIC ULCER [None]
  - HAEMOGLOBIN DECREASED [None]
  - HYPOTENSION [None]
  - MITRAL VALVE INCOMPETENCE [None]
  - MYOCARDIAL INFARCTION [None]
  - MYOCARDIAL ISCHAEMIA [None]
  - PULMONARY HYPERTENSION [None]
  - THROMBOSIS [None]
  - TRICUSPID VALVE INCOMPETENCE [None]
